FAERS Safety Report 12119151 (Version 1)
Quarter: 2016Q1

REPORT INFORMATION
  Report Type: Spontaneous
  Country: US (occurrence: None)
  Receive Date: 20160225
  Receipt Date: 20160225
  Transmission Date: 20160526
  Serious: No
  Sender: FDA-Public Use
  Company Number: None

PATIENT
  Age: 61 Year
  Sex: Female

DRUGS (4)
  1. FENTANYL. [Concomitant]
     Active Substance: FENTANYL
  2. CITRACEL [Concomitant]
  3. THERALITHE LP [Concomitant]
     Active Substance: LITHIUM CARBONATE
  4. IBRANCE [Suspect]
     Active Substance: PALBOCICLIB
     Indication: BREAST CANCER
     Dosage: 125MG DAILY OR 21 DAYS ORAL
     Route: 048
     Dates: start: 20151205

REACTIONS (1)
  - Diarrhoea [None]
